FAERS Safety Report 8889122 (Version 1)
Quarter: 2012Q4

REPORT INFORMATION
  Report Type: 
  Country: US (occurrence: US)
  Receive Date: 20121106
  Receipt Date: 20121106
  Transmission Date: 20130627
  Serious: No
  Sender: FDA-Public Use
  Company Number: US-009507513-2012SP035637

PATIENT
  Age: 2 Year
  Sex: Male

DRUGS (1)
  1. CLARITIN [Suspect]
     Indication: RASH
     Dosage: UNK UNK, Unknown
     Route: 048

REACTIONS (2)
  - Aggression [Unknown]
  - Off label use [Unknown]
